FAERS Safety Report 6136637-1 (Version None)
Quarter: 2009Q1

REPORT INFORMATION
  Report Type: 
  Country: None (occurrence: None)
  Receive Date: 20090330
  Receipt Date: 20090323
  Transmission Date: 20090719
  Serious: Yes (Hospitalization)
  Sender: FDA-Public Use
  Company Number: A0775721A

PATIENT
  Sex: Female
  Weight: 70 kg

DRUGS (2)
  1. SERETIDE [Suspect]
     Indication: CHRONIC OBSTRUCTIVE PULMONARY DISEASE
     Route: 055
     Dates: start: 20081216
  2. UNKNOWN [Concomitant]

REACTIONS (3)
  - BRONCHITIS [None]
  - DYSGEUSIA [None]
  - PARAESTHESIA ORAL [None]
